FAERS Safety Report 22068129 (Version 1)
Quarter: 2023Q1

REPORT INFORMATION
  Report Type: Spontaneous
  Country: US (occurrence: US)
  Receive Date: 20230307
  Receipt Date: 20230307
  Transmission Date: 20230418
  Serious: No
  Sender: FDA-Public Use
  Company Number: US-LEO Pharma-349821

PATIENT
  Sex: Male

DRUGS (2)
  1. ADBRY [Suspect]
     Active Substance: TRALOKINUMAB-LDRM
     Indication: Dermatitis contact
     Dosage: 300 MG UNDER THE SKIN EVERY TWO WEEKS
     Dates: start: 202212
  2. ADBRY [Suspect]
     Active Substance: TRALOKINUMAB-LDRM
     Indication: Dermatitis atopic
     Dosage: 300 MG UNDER THE SKIN EVERY TWO WEEKS
     Dates: start: 202212

REACTIONS (1)
  - Dry eye [Unknown]
